FAERS Safety Report 4467822-2 (Version None)
Quarter: 2004Q4

REPORT INFORMATION
  Report Type: 
  Country: None (occurrence: None)
  Receive Date: 20041001
  Receipt Date: 20040916
  Transmission Date: 20050328
  Serious: Yes (Other)
  Sender: FDA-Public Use
  Company Number: 2004234251PT

PATIENT
  Age: 57 Year
  Sex: Female
  Weight: 62 kg

DRUGS (7)
  1. SOLEXA (CELECOXIB) CAPSULE [Suspect]
     Indication: ARTHRALGIA
     Dosage: 200 MG, QD, ORAL
     Route: 048
     Dates: start: 20040405, end: 20040406
  2. CILAZAPRIL [Concomitant]
  3. GLICLAZIDE (GLICLAZIDE) [Concomitant]
  4. METFORMIN HCL [Concomitant]
  5. SIMVASTATIN [Concomitant]
  6. CLORAZEPATE DIPOTASSIUM [Concomitant]
  7. PROPRANOLOL [Concomitant]

REACTIONS (10)
  - ALANINE AMINOTRANSFERASE INCREASED [None]
  - ASPARTATE AMINOTRANSFERASE INCREASED [None]
  - DIARRHOEA [None]
  - GAMMA-GLUTAMYLTRANSFERASE INCREASED [None]
  - MONOCYTOSIS [None]
  - NAUSEA [None]
  - NEUTROPHIL COUNT DECREASED [None]
  - THROMBOCYTOPENIA [None]
  - TRANSAMINASES INCREASED [None]
  - VOMITING [None]
